FAERS Safety Report 5288823-0 (Version None)
Quarter: 2007Q2

REPORT INFORMATION
  Report Type: 
  Country: None (occurrence: None)
  Receive Date: 20070405
  Receipt Date: 20070329
  Transmission Date: 20071010
  Serious: Yes (Other)
  Sender: FDA-Public Use
  Company Number: DE-ABBOTT-07P-062-0361175-00

PATIENT
  Sex: Female
  Weight: 73 kg

DRUGS (5)
  1. HUMIRA [Suspect]
     Indication: RHEUMATOID ARTHRITIS
     Route: 058
     Dates: start: 20060301, end: 20060504
  2. HUMIRA [Suspect]
     Route: 058
     Dates: start: 20051114, end: 20060201
  3. METHOTREXATE [Concomitant]
     Indication: RHEUMATOID ARTHRITIS
     Route: 048
     Dates: start: 20051114, end: 20060401
  4. PREDNISOLONE [Concomitant]
     Indication: RHEUMATOID ARTHRITIS
     Route: 048
  5. PIROXICAM [Concomitant]
     Indication: RHEUMATOID ARTHRITIS
     Dosage: UNKNOWN DAILY DOSE
     Route: 048

REACTIONS (3)
  - DRUG INEFFECTIVE [None]
  - EFFUSION [None]
  - SYNOVITIS [None]
